FAERS Safety Report 6915970-7 (Version None)
Quarter: 2010Q3

REPORT INFORMATION
  Report Type: 
  Country: None (occurrence: None)
  Receive Date: 20100805
  Receipt Date: 20100727
  Transmission Date: 20110219
  Serious: Yes (Hospitalization)
  Sender: FDA-Public Use
  Company Number: 2010US002972

PATIENT
  Age: 57 Year
  Sex: Male
  Weight: 101 kg

DRUGS (9)
  1. PROGRAF [Suspect]
     Indication: RENAL TRANSPLANT
     Dosage: 4 MG, BID, ORAL
     Route: 048
     Dates: start: 20100705
  2. PREDNISONE [Suspect]
     Indication: RENAL TRANSPLANT
     Dosage: 5 MG, UID/QD, ORAL
     Route: 048
  3. ASPIRIN [Concomitant]
  4. MULTIVITAMIN [Concomitant]
  5. FLUCONAZOLE [Concomitant]
  6. NEXIUM [Concomitant]
  7. CELLCEPT [Concomitant]
  8. VALCYTE [Concomitant]
  9. CLONIDINE [Concomitant]

REACTIONS (1)
  - MYOPATHY [None]
